FAERS Safety Report 4620294-7 (Version None)
Quarter: 2005Q1

REPORT INFORMATION
  Report Type: 
  Country: None (occurrence: None)
  Receive Date: 20050324
  Receipt Date: 20050309
  Transmission Date: 20050727
  Serious: Yes (Death)
  Sender: FDA-Public Use
  Company Number: US_0503114020

PATIENT
  Age: 5 Year
  Sex: Male

DRUGS (8)
  1. VINCRISTINE SULFATE [Suspect]
     Indication: BURKITT'S LYMPHOMA STAGE II
     Dosage: 2 MG/M2 OTHER
  2. CYCLOPHOSPHAMIDE [Concomitant]
  3. METHOTREXATE [Concomitant]
  4. HYDROCORTISONE [Concomitant]
  5. LEUCOVORIN CALCIUM [Concomitant]
  6. PREDNISONE [Concomitant]
  7. HELM COTRIMOXAZOLE [Concomitant]
  8. DEXTROSE AND NACL [Concomitant]

REACTIONS (5)
  - CHILD NEGLECT [None]
  - DIARRHOEA HAEMORRHAGIC [None]
  - MALNUTRITION [None]
  - MUCOSAL INFLAMMATION [None]
  - PYREXIA [None]
